FAERS Safety Report 7282094-1 (Version None)
Quarter: 2011Q1

REPORT INFORMATION
  Report Type: 
  Country: None (occurrence: None)
  Receive Date: 20110208
  Receipt Date: 20110203
  Transmission Date: 20110831
  Serious: Yes (Other)
  Sender: FDA-Public Use
  Company Number: FR-MERCK-1101FRA00151

PATIENT
  Age: 56 Year
  Sex: Male

DRUGS (7)
  1. EMEND [Suspect]
     Route: 048
     Dates: start: 20090818, end: 20090819
  2. DOXORUBICIN HYDROCHLORIDE [Concomitant]
     Route: 042
     Dates: start: 20090817
  3. EMEND [Suspect]
     Indication: PROPHYLAXIS OF NAUSEA AND VOMITING
     Route: 048
     Dates: start: 20090817, end: 20090817
  4. IFOSFAMIDE [Suspect]
     Route: 042
     Dates: start: 20090817
  5. DOXORUBICIN HYDROCHLORIDE [Concomitant]
     Route: 042
     Dates: start: 20090907
  6. EMEND [Suspect]
     Route: 048
     Dates: start: 20090907
  7. IFOSFAMIDE [Suspect]
     Route: 042
     Dates: start: 20090907

REACTIONS (1)
  - ENCEPHALOPATHY [None]
